FAERS Safety Report 17164426 (Version 3)
Quarter: 2020Q1

REPORT INFORMATION
  Report Type: Other
  Country: DE (occurrence: DE)
  Receive Date: 20191217
  Receipt Date: 20200213
  Transmission Date: 20200409
  Serious: Yes (Other)
  Sender: FDA-Public Use
  Company Number: DE-CELLTRION INC.-2019DE027288

PATIENT

DRUGS (44)
  1. RITUXIMAB (UNKNOWN) [Suspect]
     Active Substance: RITUXIMAB
     Dosage: 738 MG, UNK
     Route: 041
     Dates: start: 20190822, end: 20190822
  2. PREDNISONE. [Suspect]
     Active Substance: PREDNISONE
     Dosage: 500 MG, UNK
     Route: 041
     Dates: start: 20190612, end: 20190616
  3. DOXORUBICIN [Suspect]
     Active Substance: DOXORUBICIN
     Indication: DIFFUSE LARGE B-CELL LYMPHOMA
     Dosage: 99 MG, UNK
     Route: 041
     Dates: start: 20190612, end: 20190612
  4. PREDNISOLUT [Concomitant]
     Active Substance: PREDNISOLONE
     Indication: PROPHYLAXIS
     Dosage: 100 MG (PREMEDICATION PRIOR RIXATHON)
     Route: 042
     Dates: start: 20190311
  5. NEULASTA [Concomitant]
     Active Substance: PEGFILGRASTIM
     Indication: PROPHYLAXIS
     Dosage: 6 MG, (PREMEDICATION PRIOR CHOP)
     Route: 058
     Dates: start: 20190313, end: 20190716
  6. RITUXIMAB (UNKNOWN) [Suspect]
     Active Substance: RITUXIMAB
     Dosage: 739 MG, UNK
     Route: 041
     Dates: start: 20190701, end: 20190701
  7. VINCRISTINE [Suspect]
     Active Substance: VINCRISTINE
     Dosage: 1 MG, UNK
     Route: 041
     Dates: start: 20190702, end: 20190702
  8. CYCLOPHOSPHAMIDE. [Suspect]
     Active Substance: CYCLOPHOSPHAMIDE
     Dosage: 1478 MG, UNK
     Route: 041
     Dates: start: 20190312, end: 20190312
  9. RITUXIMAB (UNKNOWN) [Suspect]
     Active Substance: RITUXIMAB
     Dosage: 739 MG, UNK
     Route: 041
     Dates: start: 20190611, end: 20190611
  10. RITUXIMAB (UNKNOWN) [Suspect]
     Active Substance: RITUXIMAB
     Dosage: 739 MG, UNK
     Route: 041
     Dates: start: 20190311, end: 20190311
  11. VINCRISTINE [Suspect]
     Active Substance: VINCRISTINE
     Dosage: 1 MG, UNK
     Route: 041
     Dates: start: 20190430, end: 20190430
  12. PREDNISONE. [Suspect]
     Active Substance: PREDNISONE
     Dosage: 500 MG, UNK
     Route: 041
     Dates: start: 20190312, end: 20190316
  13. PREDNISONE. [Suspect]
     Active Substance: PREDNISONE
     Dosage: 500 MG, UNK
     Route: 041
     Dates: start: 20190702, end: 20190706
  14. CYCLOPHOSPHAMIDE. [Suspect]
     Active Substance: CYCLOPHOSPHAMIDE
     Dosage: 1478 MG, UNK
     Route: 041
     Dates: start: 20190521, end: 20190521
  15. DOXORUBICIN [Suspect]
     Active Substance: DOXORUBICIN
     Dosage: 99 MG, UNK
     Route: 041
     Dates: start: 20190430, end: 20190430
  16. DOXORUBICIN [Suspect]
     Active Substance: DOXORUBICIN
     Dosage: 99 MG, UNK
     Route: 041
     Dates: start: 20190521, end: 20190521
  17. DIMETINDENE [Concomitant]
     Active Substance: DIMETHINDENE
     Indication: PROPHYLAXIS
     Dosage: 2 MG (PRE MEDICATION PRIOR RIXATHON)
     Route: 042
     Dates: start: 20190311
  18. PALONOSETRON. [Concomitant]
     Active Substance: PALONOSETRON HYDROCHLORIDE
     Indication: PROPHYLAXIS
     Dosage: 250 MG (PREMEDICATION PRIOR CHOP)
     Route: 042
     Dates: start: 20190312, end: 20190702
  19. VALSARTAN. [Concomitant]
     Active Substance: VALSARTAN
     Indication: HYPERTENSION
     Dosage: 160 MG, QD (MORNING)
     Route: 048
  20. RITUXIMAB (UNKNOWN) [Suspect]
     Active Substance: RITUXIMAB
     Indication: DIFFUSE LARGE B-CELL LYMPHOMA
     Dosage: 739 MG, UNK
     Route: 041
     Dates: start: 20190429, end: 20190429
  21. RITUXIMAB (UNKNOWN) [Suspect]
     Active Substance: RITUXIMAB
     Dosage: 739 MG, UNK
     Route: 041
     Dates: start: 20190722, end: 20190722
  22. PREDNISONE. [Suspect]
     Active Substance: PREDNISONE
     Dosage: 500 MG, UNK
     Route: 041
     Dates: start: 20190405, end: 20190409
  23. DOXORUBICIN [Suspect]
     Active Substance: DOXORUBICIN
     Dosage: 99 MG, UNK
     Route: 041
     Dates: start: 20190702, end: 20190702
  24. DOXORUBICIN [Suspect]
     Active Substance: DOXORUBICIN
     Dosage: 99 MG, UNK
     Route: 041
     Dates: start: 20190405, end: 20190405
  25. RANITIDINE. [Concomitant]
     Active Substance: RANITIDINE
     Indication: PROPHYLAXIS
     Dosage: 50 MG (PRE MEDICATION PRIOR RIXATHON)
     Route: 042
     Dates: start: 20190311
  26. RITUXIMAB (UNKNOWN) [Suspect]
     Active Substance: RITUXIMAB
     Dosage: 739 MG, UNK
     Route: 041
     Dates: start: 20190520, end: 20190520
  27. RITUXIMAB (UNKNOWN) [Suspect]
     Active Substance: RITUXIMAB
     Dosage: 738 MG, UNK
     Route: 041
     Dates: start: 20191023, end: 20191023
  28. VINCRISTINE [Suspect]
     Active Substance: VINCRISTINE
     Dosage: 1 MG, UNK
     Route: 041
     Dates: start: 20190405, end: 20190405
  29. PREDNISONE. [Suspect]
     Active Substance: PREDNISONE
     Indication: DIFFUSE LARGE B-CELL LYMPHOMA
     Dosage: 500 MG, UNK
     Route: 041
     Dates: start: 20190521, end: 20190525
  30. CYCLOPHOSPHAMIDE. [Suspect]
     Active Substance: CYCLOPHOSPHAMIDE
     Indication: DIFFUSE LARGE B-CELL LYMPHOMA
     Dosage: 1478 MG, UNK
     Route: 041
     Dates: start: 20190702, end: 20190702
  31. DOXORUBICIN [Suspect]
     Active Substance: DOXORUBICIN
     Dosage: 99 MG, UNK
     Route: 041
     Dates: start: 20190312, end: 20190312
  32. HYDROCHLOROTHIAZIDE. [Concomitant]
     Active Substance: HYDROCHLOROTHIAZIDE
     Indication: HYPERTENSION
     Dosage: 12MG,5MG (AS REQUIRED)
     Route: 048
  33. PARACETAMOL [Concomitant]
     Active Substance: ACETAMINOPHEN
     Indication: PROPHYLAXIS
     Dosage: 500 MG (PRE MEDICATION PRIOR RIXATHON)
     Route: 048
     Dates: start: 20190311
  34. RITUXIMAB (UNKNOWN) [Suspect]
     Active Substance: RITUXIMAB
     Dosage: 739 MG, UNK
     Route: 041
     Dates: start: 20190404, end: 20190404
  35. VINCRISTINE [Suspect]
     Active Substance: VINCRISTINE
     Indication: DIFFUSE LARGE B-CELL LYMPHOMA
     Dosage: 1 MG, UNK
     Route: 041
     Dates: start: 20090612, end: 20190612
  36. VINCRISTINE [Suspect]
     Active Substance: VINCRISTINE
     Dosage: 1 MG, UNK
     Route: 041
     Dates: start: 20190521, end: 20190521
  37. PREDNISONE. [Suspect]
     Active Substance: PREDNISONE
     Dosage: 500 MG, UNK
     Route: 041
     Dates: start: 20190430, end: 20190504
  38. PREDNISONE. [Suspect]
     Active Substance: PREDNISONE
     Dosage: 500 MG, UNK
     Route: 041
     Dates: start: 20190702, end: 20190702
  39. CYCLOPHOSPHAMIDE. [Suspect]
     Active Substance: CYCLOPHOSPHAMIDE
     Dosage: 1478 MG, UNK
     Route: 041
     Dates: start: 20190430, end: 20190430
  40. MESNA. [Concomitant]
     Active Substance: MESNA
     Indication: PROPHYLAXIS
     Dosage: 400 MG (PREMEDICATION PRIOR CHOP)
     Route: 048
     Dates: start: 20190312, end: 20190702
  41. RITUXIMAB (UNKNOWN) [Suspect]
     Active Substance: RITUXIMAB
     Dosage: 738 MG, UNK
     Route: 041
  42. VINCRISTINE [Suspect]
     Active Substance: VINCRISTINE
     Dosage: 1 MG, UNK
     Route: 041
     Dates: start: 20190312, end: 20190312
  43. CYCLOPHOSPHAMIDE. [Suspect]
     Active Substance: CYCLOPHOSPHAMIDE
     Dosage: 1478 MG, UNK
     Route: 041
     Dates: start: 20190405, end: 20190405
  44. CYCLOPHOSPHAMIDE. [Suspect]
     Active Substance: CYCLOPHOSPHAMIDE
     Dosage: 1478 MG, UNK
     Route: 041
     Dates: start: 20190612, end: 20190612

REACTIONS (4)
  - Fatigue [Not Recovered/Not Resolved]
  - Monoplegia [Recovered/Resolved]
  - Speech disorder [Recovered/Resolved]
  - Myalgia [Recovered/Resolved]

NARRATIVE: CASE EVENT DATE: 20190314
